FAERS Safety Report 7722362 (Version 4)
Quarter: 2013Q4

REPORT INFORMATION
  Report Type: Spontaneous
  Country: JP (occurrence: JP)
  Receive Date: 20101220
  Receipt Date: 20131129
  Transmission Date: 20140711
  Serious: Yes (Death)
  Sender: FDA-Public Use
  Company Number: PHHY2010JP85577

PATIENT
  Age: 16 Year
  Sex: Female

DRUGS (1)
  1. VOLTAREN [Suspect]
     Indication: PYREXIA
     Dosage: UNK
     Route: 054

REACTIONS (9)
  - Toxic epidermal necrolysis [Fatal]
  - Erythema [Fatal]
  - Gastrointestinal erosion [Fatal]
  - Gastrointestinal haemorrhage [Fatal]
  - Hepatic failure [Fatal]
  - Hepatic function abnormal [Fatal]
  - Hyperbilirubinaemia [Fatal]
  - Sepsis [Fatal]
  - Adrenal insufficiency [Fatal]
